FAERS Safety Report 10181946 (Version 2)
Quarter: 2014Q2

REPORT INFORMATION
  Report Type: Spontaneous
  Country: US (occurrence: US)
  Receive Date: 20140519
  Receipt Date: 20140519
  Transmission Date: 20141212
  Serious: Yes (Other)
  Sender: FDA-Public Use
  Company Number: US-GILEAD-2014-0099289

PATIENT
  Age: 50 Year
  Sex: Male

DRUGS (4)
  1. SOVALDI [Suspect]
     Indication: HEPATITIS C
     Dosage: 400 MG, QD
     Route: 048
     Dates: start: 20140213
  2. SIMEPREVIR [Concomitant]
     Indication: HEPATITIS C
     Dosage: 150 MG, QD
     Route: 048
     Dates: start: 20140213
  3. LAMICTAL [Concomitant]
     Dosage: UNK, AS DIRECTED
  4. METHADONE [Concomitant]
     Dosage: 180 MG, QD

REACTIONS (2)
  - Type 2 diabetes mellitus [Unknown]
  - Blood glucose abnormal [Unknown]
